FAERS Safety Report 6240391-2 (Version None)
Quarter: 2009Q2

REPORT INFORMATION
  Report Type: 
  Country: None (occurrence: None)
  Receive Date: 20090623
  Receipt Date: 20080528
  Transmission Date: 20091009
  Serious: No
  Sender: FDA-Public Use
  Company Number: US-ASTRAZENECA-2008UW12186

PATIENT
  Age: 68 Year
  Sex: Female

DRUGS (4)
  1. PULMICORT-100 [Suspect]
     Route: 055
  2. BROVANA [Suspect]
     Indication: CHRONIC OBSTRUCTIVE PULMONARY DISEASE
     Dosage: 15 UG/ML BID
     Route: 055
     Dates: start: 20080401, end: 20080501
  3. BROVANA [Suspect]
     Dosage: 15 UG/ML QD
     Route: 055
     Dates: start: 20080501
  4. COMBIVENT [Concomitant]

REACTIONS (2)
  - HEADACHE [None]
  - HEART RATE INCREASED [None]
